FAERS Safety Report 5752350-4 (Version None)
Quarter: 2008Q2

REPORT INFORMATION
  Report Type: 
  Country: None (occurrence: None)
  Receive Date: 20080529
  Receipt Date: 20080526
  Transmission Date: 20081010
  Serious: Yes (Other)
  Sender: FDA-Public Use
  Company Number: JP-BRISTOL-MYERS SQUIBB COMPANY-14184493

PATIENT
  Age: 37 Year
  Sex: Female

DRUGS (1)
  1. TAXOL [Suspect]
     Indication: BREAST CANCER
     Dosage: 115.2 MG 1/1 WEEK. STARTED ON 26DEC07. 10MAR08 11TH CYCLE 17MAR08 12TH CYCLE WAS SKIPPED
     Route: 041
     Dates: start: 20080310, end: 20080310

REACTIONS (2)
  - PERICARDIAL EFFUSION [None]
  - PYREXIA [None]
